FAERS Safety Report 8915834 (Version 1)
Quarter: 2012Q4

REPORT INFORMATION
  Report Type: 
  Country: US (occurrence: US)
  Receive Date: 20121119
  Receipt Date: 20121119
  Transmission Date: 20130627
  Serious: No
  Sender: FDA-Public Use
  Company Number: US-009507513-1211USA004292

PATIENT
  Age: 16 Year
  Sex: Female
  Weight: 48.98 kg

DRUGS (3)
  1. IMPLANON [Suspect]
     Indication: CONTRACEPTION
     Dosage: UNK
     Dates: start: 201101
  2. IMPLANON [Suspect]
     Indication: ANAEMIA
  3. METRONIDAZOLE [Concomitant]
     Indication: CONTRACEPTION
     Dosage: UNK

REACTIONS (1)
  - Metrorrhagia [Not Recovered/Not Resolved]
